FAERS Safety Report 8768311 (Version 2)
Quarter: 2012Q4

REPORT INFORMATION
  Report Type: 
  Country: US (occurrence: US)
  Receive Date: 20120904
  Receipt Date: 20121204
  Transmission Date: 20130627
  Serious: No
  Sender: FDA-Public Use
  Company Number: US-AMGEN-USASP2012053426

PATIENT
  Age: 66 Year
  Sex: Female

DRUGS (1)
  1. ENBREL [Suspect]
     Indication: RHEUMATOID ARTHRITIS
     Dosage: 25 mg, less than once a week
     Dates: start: 20031201, end: 201204

REACTIONS (7)
  - Rheumatoid arthritis [Recovered/Resolved]
  - Joint effusion [Recovered/Resolved]
  - Asthenia [Unknown]
  - Oropharyngeal pain [Recovered/Resolved]
  - Treatment noncompliance [Unknown]
  - Lymphadenopathy [Recovered/Resolved]
  - Infection [Recovered/Resolved]
